FAERS Safety Report 23288538 (Version 2)
Quarter: 2024Q1

REPORT INFORMATION
  Report Type: Report from Study
  Country: US (occurrence: US)
  Receive Date: 20231212
  Receipt Date: 20240210
  Transmission Date: 20240410
  Serious: Yes (Other)
  Sender: FDA-Public Use
  Company Number: US-002147023-NVSC2023US258558

PATIENT
  Sex: Male

DRUGS (1)
  1. KESIMPTA [Suspect]
     Active Substance: OFATUMUMAB
     Indication: Relapsing multiple sclerosis
     Dosage: 20 MG, QW
     Route: 058
     Dates: start: 20231111

REACTIONS (6)
  - Loss of consciousness [Unknown]
  - Dehydration [Unknown]
  - Eye contusion [Unknown]
  - Contusion [Unknown]
  - Hypotension [Unknown]
  - Off label use [Unknown]
